FAERS Safety Report 13156112 (Version 1)
Quarter: 2017Q1

REPORT INFORMATION
  Report Type: Spontaneous
  Country: RU (occurrence: RU)
  Receive Date: 20170126
  Receipt Date: 20170126
  Transmission Date: 20170428
  Serious: Yes (Disabling)
  Sender: FDA-Public Use
  Company Number: RU-PFIZER INC-2017031262

PATIENT
  Age: 41 Year
  Sex: Female
  Weight: 67 kg

DRUGS (2)
  1. CONTROLOC [Suspect]
     Active Substance: PANTOPRAZOLE SODIUM
     Indication: GASTRITIS EROSIVE
     Dosage: 20 MG, QD
     Route: 048
     Dates: start: 20161118, end: 20161121
  2. DE-NOL /00139309/ [Concomitant]
     Indication: GASTRITIS EROSIVE
     Dosage: UNK
     Route: 048
     Dates: start: 20161114, end: 20161121

REACTIONS (9)
  - Emotional disorder [Recovered/Resolved]
  - Tearfulness [Recovered/Resolved]
  - Activities of daily living impaired [Recovered/Resolved]
  - Aggression [Recovered/Resolved]
  - Blood pressure abnormal [Recovered/Resolved]
  - Impaired work ability [Recovered/Resolved]
  - Depression [Recovered/Resolved]
  - Breath odour [Recovered/Resolved]
  - Pulse abnormal [Recovered/Resolved]

NARRATIVE: CASE EVENT DATE: 20161120
